FAERS Safety Report 7722964-0 (Version None)
Quarter: 2011Q3

REPORT INFORMATION
  Report Type: 
  Country: None (occurrence: None)
  Receive Date: 20110901
  Receipt Date: 20110820
  Transmission Date: 20111222
  Serious: Yes (Other)
  Sender: FDA-Public Use
  Company Number: US-JNJFOC-20110608693

PATIENT
  Sex: Female
  Weight: 104.33 kg

DRUGS (16)
  1. DIGOXIN [Concomitant]
  2. HYDROCODONE BITARTRATE [Suspect]
     Indication: ARTHRALGIA
     Dates: start: 20110530
  3. STELARA [Suspect]
     Indication: PSORIASIS
     Route: 058
     Dates: start: 20110527
  4. ALLOPURINOL [Concomitant]
  5. FUROSEMIDE [Concomitant]
  6. THEO-24 [Concomitant]
  7. LEVOTHYROXINE SODIUM [Concomitant]
  8. CLARITIN [Concomitant]
  9. CENTRUM SILVER [Concomitant]
  10. LIPITOR [Concomitant]
  11. GLIMEPIRIDE [Concomitant]
  12. LOSARTAN [Concomitant]
  13. PERCOCET [Suspect]
     Indication: PAIN
  14. CARTIA XT [Concomitant]
  15. SINGULAIR [Concomitant]
  16. SPIRONOLACTONE [Concomitant]

REACTIONS (6)
  - CONFUSIONAL STATE [None]
  - FALL [None]
  - MYALGIA [None]
  - GAIT DISTURBANCE [None]
  - ARTHRALGIA [None]
  - ASTHENIA [None]
